FAERS Safety Report 26004897 (Version 1)
Quarter: 2025Q4

REPORT INFORMATION
  Report Type: Report from Study
  Country: US (occurrence: US)
  Receive Date: 20251106
  Receipt Date: 20251106
  Transmission Date: 20260117
  Serious: Yes (Death)
  Sender: JOHNSON AND JOHNSON
  Company Number: US-JNJFOC-20251142940

PATIENT
  Age: 63 Year
  Sex: Female

DRUGS (2)
  1. SPRAVATO [Suspect]
     Active Substance: ESKETAMINE
     Indication: Depression
     Dosage: 56 MG, TOTAL OF 2 DOSES
     Route: 045
     Dates: start: 20250811, end: 20250814
  2. SPRAVATO [Suspect]
     Active Substance: ESKETAMINE
     Dosage: 84 MG, TOTAL OF 9 DOSES
     Route: 045
     Dates: start: 20250819, end: 20250919

REACTIONS (1)
  - Death [Fatal]

NARRATIVE: CASE EVENT DATE: 20251027
